FAERS Safety Report 12077665 (Version 3)
Quarter: 2016Q1

REPORT INFORMATION
  Report Type: Spontaneous
  Country: US (occurrence: US)
  Receive Date: 20160215
  Receipt Date: 20160311
  Transmission Date: 20160526
  Serious: Yes (Death)
  Sender: FDA-Public Use
  Company Number: US-009507513-1602USA005864

PATIENT
  Age: 66 Year
  Sex: Male

DRUGS (2)
  1. EMEND [Suspect]
     Active Substance: APREPITANT
     Dosage: 125 MG ON DAY ONE
     Route: 048
     Dates: start: 20150102
  2. EMEND [Suspect]
     Active Substance: APREPITANT
     Dosage: 80 MG ON DAYS 2 AND 3
     Route: 048
     Dates: start: 20150103

REACTIONS (1)
  - Death [Fatal]

NARRATIVE: CASE EVENT DATE: 20150709
